FAERS Safety Report 8248524-3 (Version None)
Quarter: 2012Q1

REPORT INFORMATION
  Report Type: 
  Country: None (occurrence: None)
  Receive Date: 20120330
  Receipt Date: 20120327
  Transmission Date: 20120608
  Serious: Yes (Hospitalization)
  Sender: FDA-Public Use
  Company Number: DE-ROCHE-1019082

PATIENT
  Age: 65 Year
  Sex: Male
  Weight: 88.2 kg

DRUGS (11)
  1. DIGESTION AID (UNK INGREDIENTS) [Concomitant]
     Dosage: DAILY DOSE : 60 DROPS
     Dates: start: 20111021
  2. ZOLEDRONOC ACID [Concomitant]
     Dates: start: 20111014
  3. VEMURAFENIB [Suspect]
     Indication: METASTATIC MALIGNANT MELANOMA
     Dosage: DATE OF LAST DOSE PRIOR TO SAE : 17/NOV/2011
     Route: 048
     Dates: start: 20111104
  4. RAMIPRIL [Concomitant]
     Dates: start: 20060101
  5. FINASTERID [Concomitant]
     Dates: start: 20090101
  6. HYDROMORPHONE HCL [Concomitant]
     Dates: start: 20111021
  7. OMEPRAZOLE [Concomitant]
     Dates: start: 20111014
  8. XIPAMID [Concomitant]
     Dates: start: 20060101
  9. BISOPROLOL FUMARATE [Concomitant]
     Dates: start: 20110201
  10. KALIUMIODID [Concomitant]
     Dates: start: 20060101
  11. NATRIUMPICOSULFAT [Concomitant]
     Dosage: DAILY DOSE : 30 DROPS
     Dates: start: 20111021

REACTIONS (1)
  - BURSITIS [None]
